FAERS Safety Report 16004253 (Version 1)
Quarter: 2019Q1

REPORT INFORMATION
  Report Type: Spontaneous
  Country: US (occurrence: US)
  Receive Date: 20190225
  Receipt Date: 20190225
  Transmission Date: 20190418
  Serious: Yes (Other)
  Sender: FDA-Public Use
  Company Number: None

PATIENT
  Age: 58 Year
  Sex: Female
  Weight: 69.75 kg

DRUGS (5)
  1. TRAZODONE [Concomitant]
     Active Substance: TRAZODONE HYDROCHLORIDE
  2. XIIDRA [Concomitant]
     Active Substance: LIFITEGRAST
  3. TOPIRAMATE 100MG TABLET GTIN: 00369097124038, S/N 88056924992682, EXO [Suspect]
     Active Substance: TOPIRAMATE
     Indication: MIGRAINE PROPHYLAXIS
     Dosage: ?          QUANTITY:2 TABLET(S);?
     Route: 048
     Dates: start: 20170301, end: 20180926
  4. MAGNESIUM [Concomitant]
     Active Substance: MAGNESIUM
  5. TURMERIC CURCUMIN [Concomitant]
     Active Substance: HERBALS\TURMERIC

REACTIONS (4)
  - Osteoporosis [None]
  - Muscle spasms [None]
  - Alopecia [None]
  - Hypercalciuria [None]

NARRATIVE: CASE EVENT DATE: 20180716
